FAERS Safety Report 8649832 (Version 2)
Quarter: 2013Q1

REPORT INFORMATION
  Report Type: Spontaneous
  Country: US (occurrence: US)
  Receive Date: 20120705
  Receipt Date: 20130225
  Transmission Date: 20140127
  Serious: Yes (Hospitalization, Other)
  Sender: FDA-Public Use
  Company Number: US-BAYER-2012-064832

PATIENT
  Age: 18 Year
  Sex: Female
  Weight: 70.3 kg

DRUGS (8)
  1. OCELLA [Suspect]
     Indication: ACNE
     Dosage: UNK
     Dates: start: 2006, end: 2009
  2. YAZ [Suspect]
     Indication: ACNE
     Dosage: UNK
     Dates: start: 20070618, end: 20081210
  3. YAZ [Suspect]
     Indication: ACNE
     Dosage: UNK
     Dates: start: 2006, end: 2009
  4. THYROID/SPECTRA 3 [Concomitant]
     Dosage: UNK;ONLY USED TWICE
  5. VITAMIN C [Concomitant]
     Indication: FEELING COLD
  6. MOTRIN [Concomitant]
     Dosage: UNK;OCCASIONALLY MAY BE ONCE OR TWIC A MONTH
  7. MINOCYCLINE [Concomitant]
  8. ^ANTIBIOTICS, AMPECILLIN^ [Concomitant]
     Dosage: UNK;2 TO 3 TIMES IN LIFETIME

REACTIONS (21)
  - Syncope [None]
  - Retinal vascular occlusion [None]
  - Deep vein thrombosis [None]
  - Injury [None]
  - Pain [None]
  - Pain [None]
  - Vomiting [None]
  - Vision blurred [None]
  - Visual impairment [None]
  - Kidney infection [None]
  - Urine odour abnormal [None]
  - Skin odour abnormal [None]
  - Palpitations [None]
  - Dizziness [None]
  - Gallbladder disorder [None]
  - Hypertension [None]
  - Hypotension [None]
  - Migraine [None]
  - Nausea [None]
  - Headache [None]
  - Off label use [None]
